FAERS Safety Report 18546919 (Version 1)
Quarter: 2020Q4

REPORT INFORMATION
  Report Type: Spontaneous
  Country: US (occurrence: BR)
  Receive Date: 20201125
  Receipt Date: 20201125
  Transmission Date: 20210114
  Serious: No
  Sender: FDA-Public Use
  Company Number: BR-SA-2020SA155842

PATIENT

DRUGS (2)
  1. LANTUS [Suspect]
     Active Substance: INSULIN GLARGINE
     Dosage: 1 APPLICATION IN THE MORNING AND 1 IN THE EVENING
     Route: 065
  2. APIDRA [Suspect]
     Active Substance: INSULIN GLULISINE
     Dosage: UNK
     Route: 065

REACTIONS (6)
  - Inappropriate schedule of product administration [Unknown]
  - Blood glucose fluctuation [Unknown]
  - Device issue [Unknown]
  - Device use issue [Unknown]
  - Circumstance or information capable of leading to medication error [Unknown]
  - Multiple use of single-use product [Unknown]
